FAERS Safety Report 5245204-3 (Version None)
Quarter: 2007Q1

REPORT INFORMATION
  Report Type: 
  Country: None (occurrence: None)
  Receive Date: 20070223
  Receipt Date: 20070219
  Transmission Date: 20070707
  Serious: Yes (Hospitalization)
  Sender: FDA-Public Use
  Company Number: 2007PK00265

PATIENT
  Sex: Male

DRUGS (7)
  1. ATACAND [Suspect]
     Indication: ESSENTIAL HYPERTENSION
     Route: 048
     Dates: start: 20060928, end: 20061008
  2. ATACAND [Suspect]
     Indication: MICROALBUMINURIA
     Route: 048
     Dates: start: 20060928, end: 20061008
  3. SIMVA [Concomitant]
  4. SIOFOR [Concomitant]
  5. AMLODIPINE [Concomitant]
  6. DEPRESSAN [Concomitant]
  7. METO SUCC [Concomitant]

REACTIONS (1)
  - HYPERTENSIVE CRISIS [None]
